FAERS Safety Report 20467697 (Version 1)
Quarter: 2022Q1

REPORT INFORMATION
  Report Type: Spontaneous
  Country: FR (occurrence: FR)
  Receive Date: 20220214
  Receipt Date: 20220214
  Transmission Date: 20220423
  Serious: Yes (Hospitalization, Other)
  Sender: FDA-Public Use
  Company Number: None

PATIENT
  Age: 49 Year
  Sex: Male

DRUGS (4)
  1. TRAMADOL [Suspect]
     Active Substance: TRAMADOL
     Dosage: TRAMADOL BASE, 120 DF
     Route: 048
     Dates: start: 20200901, end: 20200901
  2. COCAINE [Suspect]
     Active Substance: COCAINE
     Dosage: 1 G
     Route: 045
     Dates: start: 202006
  3. SUBUTEX [Suspect]
     Active Substance: BUPRENORPHINE HYDROCHLORIDE
     Dosage: SUBUTEX 8 MG, COMPRIME SUBLINGUAL, 7 DF
     Route: 048
     Dates: start: 20200901, end: 20200901
  4. XANAX [Suspect]
     Active Substance: ALPRAZOLAM
     Route: 048
     Dates: start: 20200901, end: 20200901

REACTIONS (3)
  - Hallucination [Recovered/Resolved]
  - Withdrawal syndrome [Recovered/Resolved]
  - Drug abuse [Recovering/Resolving]

NARRATIVE: CASE EVENT DATE: 20200601
